FAERS Safety Report 9367695 (Version 1)
Quarter: 2013Q2

REPORT INFORMATION
  Report Type: Report from Study
  Country: AU (occurrence: AU)
  Receive Date: 20130625
  Receipt Date: 20130625
  Transmission Date: 20140414
  Serious: Yes (Death, Other)
  Sender: FDA-Public Use
  Company Number: AU-GILEAD-2013-0077752

PATIENT
  Sex: 0

DRUGS (5)
  1. TENOFOVIR DISOPROXIL FUMARATE [Suspect]
     Indication: HIV INFECTION
  2. RITONAVIR [Suspect]
     Indication: HIV INFECTION
     Dosage: 50 MG, UNK
     Route: 048
  3. LOPINAVIR [Suspect]
     Indication: HIV INFECTION
     Dosage: 200 MG, UNK
     Route: 048
  4. ZIDOVUDINE [Suspect]
     Indication: HIV INFECTION
  5. LAMIVUDINE [Suspect]
     Indication: HIV INFECTION

REACTIONS (1)
  - Acute hepatic failure [Fatal]
